FAERS Safety Report 8191601-6 (Version None)
Quarter: 2012Q1

REPORT INFORMATION
  Report Type: 
  Country: None (occurrence: None)
  Receive Date: 20120307
  Receipt Date: 20120228
  Transmission Date: 20120608
  Serious: Yes (Hospitalization)
  Sender: FDA-Public Use
  Company Number: AU-AMGEN-AUSCT2012010167

PATIENT
  Age: 51 Year
  Sex: Female

DRUGS (12)
  1. NEULASTA [Suspect]
     Dosage: 6 MG, Q3WK
     Route: 058
     Dates: start: 20120118
  2. NAVOBAN [Concomitant]
     Dosage: 5 MG, Q3WK
     Route: 048
     Dates: start: 20120117
  3. DEXAMETHASONE [Concomitant]
     Dosage: 8 MG, Q3WK
     Route: 048
     Dates: start: 20120117
  4. HERCEPTIN [Concomitant]
     Dosage: 375 MG, Q3WK
     Route: 042
     Dates: start: 20120117
  5. TEMAZEPAM [Concomitant]
     Dosage: 10 MG, PRN
     Route: 048
     Dates: start: 20120216
  6. DOCETAXEL [Concomitant]
     Dosage: 175 MG, Q3WK
     Route: 042
     Dates: start: 20120117
  7. DIFFLAM [Concomitant]
     Dosage: 10 ML, QID
     Route: 048
     Dates: start: 20120101
  8. PLACEBO [Suspect]
     Indication: BREAST CANCER
     Dates: start: 20110927
  9. BLINDED DENOSUMAB [Suspect]
     Indication: BREAST CANCER
     Dates: start: 20110927
  10. ENDEP [Concomitant]
     Dosage: 50 MG, QD
     Route: 048
     Dates: start: 20060101
  11. SEREPAX [Concomitant]
     Dosage: 10 MG, QD
     Route: 048
     Dates: start: 20060101
  12. VENTOLIN [Concomitant]
     Dosage: 100 MUG, PRN
     Route: 055
     Dates: start: 20111122

REACTIONS (1)
  - PAIN [None]
